FAERS Safety Report 19438883 (Version 11)
Quarter: 2022Q2

REPORT INFORMATION
  Report Type: Report from Study
  Country: CA (occurrence: CA)
  Receive Date: 20210618
  Receipt Date: 20220615
  Transmission Date: 20220721
  Serious: Yes (Disabling, Other)
  Sender: FDA-Public Use
  Company Number: CA-BAUSCH-BL-2020-026691

PATIENT
  Age: 77 Year
  Sex: Male

DRUGS (10)
  1. SILIQ [Suspect]
     Active Substance: BRODALUMAB
     Indication: Psoriasis
     Dosage: 210 MG/ 1.5 ML, WEEKLY DOSE, WEEK 0,1,2
     Route: 058
     Dates: start: 20200819, end: 20200902
  2. SILIQ [Suspect]
     Active Substance: BRODALUMAB
     Dosage: 210 MG/ 1.5 ML,  ALTERNATE WEEKS
     Route: 058
     Dates: start: 202009
  3. SILIQ [Suspect]
     Active Substance: BRODALUMAB
     Dosage: 210 MG/ 1.5 ML
     Route: 058
     Dates: start: 2021, end: 2021
  4. SILIQ [Suspect]
     Active Substance: BRODALUMAB
     Dosage: 210 MG/ 1.5 ML
     Route: 058
     Dates: start: 20210826, end: 2021
  5. SILIQ [Suspect]
     Active Substance: BRODALUMAB
     Dosage: 210 MG/ 1.5 ML, 01/SEP/2021
     Route: 058
     Dates: start: 20210526, end: 2021
  6. SILIQ [Suspect]
     Active Substance: BRODALUMAB
     Dosage: 210 MG/ 1.5 ML
     Route: 058
     Dates: start: 20210915
  7. SILIQ [Suspect]
     Active Substance: BRODALUMAB
     Dosage: 210 MG/ 1.5 ML, Q 2 WEEKS
     Route: 058
     Dates: start: 20220511
  8. AMOXICILLIN [Suspect]
     Active Substance: AMOXICILLIN
     Indication: Prophylaxis
     Route: 065
  9. GABAPENTIN [Concomitant]
     Active Substance: GABAPENTIN
     Indication: Anticoagulant therapy
     Dosage: DAILY
     Dates: start: 20210429
  10. METFORMIN [Concomitant]
     Active Substance: METFORMIN HYDROCHLORIDE
     Indication: Diabetes mellitus
     Dosage: DAILY
     Dates: start: 20210429

REACTIONS (22)
  - Diabetes mellitus [Not Recovered/Not Resolved]
  - Diabetic bullosis [Recovering/Resolving]
  - Stasis dermatitis [Recovering/Resolving]
  - Joint swelling [Recovering/Resolving]
  - Erythema [Recovered/Resolved]
  - Pain in extremity [Recovering/Resolving]
  - Peripheral swelling [Not Recovered/Not Resolved]
  - Skin disorder [Not Recovered/Not Resolved]
  - Paraesthesia [Not Recovered/Not Resolved]
  - Psoriasis [Not Recovered/Not Resolved]
  - Disease recurrence [Unknown]
  - Blister [Not Recovered/Not Resolved]
  - Inflammation [Not Recovered/Not Resolved]
  - Intermittent claudication [Not Recovered/Not Resolved]
  - Oedema peripheral [Not Recovered/Not Resolved]
  - Tachycardia [Unknown]
  - Palpitations [Unknown]
  - Skin discolouration [Unknown]
  - Urticaria [Unknown]
  - Arthralgia [Not Recovered/Not Resolved]
  - Therapy non-responder [Unknown]
  - Inappropriate schedule of product administration [Unknown]

NARRATIVE: CASE EVENT DATE: 20200101
